FAERS Safety Report 6919082-8 (Version None)
Quarter: 2010Q3

REPORT INFORMATION
  Report Type: 
  Country: None (occurrence: None)
  Receive Date: 20100811
  Receipt Date: 20100803
  Transmission Date: 20110219
  Serious: Yes (Hospitalization, Other)
  Sender: FDA-Public Use
  Company Number: PHHO2010FR10791

PATIENT
  Sex: Male
  Weight: 60 kg

DRUGS (6)
  1. MYFORTIC [Suspect]
     Indication: RENAL TRANSPLANT
     Dosage: 720 MG / DAY
     Route: 048
     Dates: start: 20100319, end: 20100706
  2. CERTICAN [Suspect]
     Indication: RENAL TRANSPLANT
     Dosage: 3 MG / DAY
     Route: 048
     Dates: start: 20100624
  3. NEORAL [Suspect]
     Indication: RENAL TRANSPLANT
     Dosage: UNK
     Route: 048
     Dates: start: 20100315
  4. AUGMENTIN '125' [Concomitant]
  5. CORTANCYL [Concomitant]
  6. ROVALCYTE [Concomitant]

REACTIONS (4)
  - COLITIS ULCERATIVE [None]
  - DIARRHOEA [None]
  - RENAL FAILURE ACUTE [None]
  - WEIGHT DECREASED [None]
